FAERS Safety Report 18343600 (Version 1)
Quarter: 2020Q4

REPORT INFORMATION
  Report Type: Spontaneous
  Country: IT (occurrence: IT)
  Receive Date: 20201005
  Receipt Date: 20201005
  Transmission Date: 20210113
  Serious: Yes (Hospitalization)
  Sender: FDA-Public Use
  Company Number: IT-JUBILANT CADISTA PHARMACEUTICALS-2020JUB00295

PATIENT
  Age: 73 Year
  Sex: Female

DRUGS (1)
  1. QUETIAPINE. [Suspect]
     Active Substance: QUETIAPINE
     Dosage: 120 MG ^EXTENDED RELEASE PILLS^, ONCE
     Route: 048

REACTIONS (2)
  - Bezoar [Recovered/Resolved]
  - Gastric perforation [Recovering/Resolving]
